FAERS Safety Report 7349209-8 (Version None)
Quarter: 2011Q1

REPORT INFORMATION
  Report Type: 
  Country: None (occurrence: None)
  Receive Date: 20110225
  Receipt Date: 20101210
  Transmission Date: 20110831
  Serious: Yes (Other)
  Sender: FDA-Public Use
  Company Number: 313113

PATIENT
  Age: 52 Year
  Sex: Male
  Weight: 135.1 kg

DRUGS (12)
  1. VICTOZA [Suspect]
     Indication: DIABETES MELLITUS
     Dosage: 0.6 MG, QD X 1 WEEK, SUBCUTANEOUS, 1.2 MG, QD, SUBCUTANEOUS
     Route: 058
     Dates: start: 20100420, end: 20100401
  2. VICTOZA [Suspect]
     Indication: DIABETES MELLITUS
     Dosage: 0.6 MG, QD X 1 WEEK, SUBCUTANEOUS, 1.2 MG, QD, SUBCUTANEOUS
     Route: 058
     Dates: start: 20100401, end: 20100713
  3. FISH OIL (FISH OIL) [Concomitant]
  4. FUROSEMIDE [Concomitant]
  5. PRAVASTATIN SODIUM [Concomitant]
  6. ISOSORBIDE MONONITRATE [Concomitant]
  7. ASPIRIN [Concomitant]
  8. MULTIVITAMINS (ASCORBIC ACID, ERGOCALCIFEROL, FOLIC ACID, NICOTINAMIDE [Concomitant]
  9. METFORMIN (METFORMIN) [Concomitant]
  10. UROXATRAL [Concomitant]
  11. GLIPIZIDE [Concomitant]
  12. LISINOPRIL [Concomitant]

REACTIONS (1)
  - PANCREATITIS ACUTE [None]
